FAERS Safety Report 16409353 (Version 1)
Quarter: 2019Q2

REPORT INFORMATION
  Report Type: Spontaneous
  Country: US (occurrence: US)
  Receive Date: 20190610
  Receipt Date: 20190610
  Transmission Date: 20190711
  Serious: No
  Sender: FDA-Public Use
  Company Number: US-TEVA-2019-US-1051682

PATIENT
  Sex: Male

DRUGS (1)
  1. TEVA SILDENAFIL [Suspect]
     Active Substance: SILDENAFIL
     Indication: ERECTILE DYSFUNCTION
     Dates: start: 20190510

REACTIONS (8)
  - Therapeutic product effect delayed [Unknown]
  - Nasal congestion [Unknown]
  - Cyanopsia [Unknown]
  - Oxygen consumption decreased [Unknown]
  - Dyspnoea [Unknown]
  - Productive cough [Unknown]
  - Foot fracture [Unknown]
  - Therapeutic product effect variable [Unknown]

NARRATIVE: CASE EVENT DATE: 20190510
